FAERS Safety Report 8553593-7 (Version None)
Quarter: 2012Q2

REPORT INFORMATION
  Report Type: 
  Country: None (occurrence: None)
  Receive Date: 20120417
  Receipt Date: 20120115
  Transmission Date: 20120825
  Serious: Yes (Other)
  Sender: FDA-Public Use
  Company Number: 12-030

PATIENT
  Age: 45 Year
  Sex: Male
  Weight: 95 kg

DRUGS (1)
  1. NAPROXEN SODIUM [Suspect]
     Indication: HEADACHE
     Dosage: 2 DF / ONCE / ORAL
     Route: 048
     Dates: start: 20120112, end: 20120112

REACTIONS (1)
  - HYPERSENSITIVITY [None]
